FAERS Safety Report 9225493 (Version 1)
Quarter: 2013Q2

REPORT INFORMATION
  Report Type: Report from Study
  Country: DE (occurrence: DE)
  Receive Date: 20130411
  Receipt Date: 20130411
  Transmission Date: 20140414
  Serious: Yes (Other)
  Sender: FDA-Public Use
  Company Number: DE-ROCHE-1208963

PATIENT
  Sex: 0

DRUGS (6)
  1. TENECTEPLASE [Suspect]
     Indication: ACUTE MYOCARDIAL INFARCTION
     Route: 042
  2. ASPIRIN [Concomitant]
     Indication: ACUTE MYOCARDIAL INFARCTION
     Route: 042
  3. HEPARIN [Concomitant]
     Indication: ACUTE MYOCARDIAL INFARCTION
     Dosage: 60 U/KG MAXIMUM 5000 U
     Route: 042
  4. CLOPIDOGREL [Concomitant]
     Indication: ACUTE MYOCARDIAL INFARCTION
     Route: 048
  5. CLOPIDOGREL [Concomitant]
     Route: 065
  6. GLYCOPROTEIN IIB/IIIA INHIBITOR NOS [Concomitant]
     Indication: ACUTE MYOCARDIAL INFARCTION
     Route: 065

REACTIONS (1)
  - Ischaemic stroke [Unknown]
